FAERS Safety Report 15707530 (Version 2)
Quarter: 2018Q4

REPORT INFORMATION
  Report Type: Spontaneous
  Country: US (occurrence: US)
  Receive Date: 20181211
  Receipt Date: 20181225
  Transmission Date: 20190205
  Serious: Yes (Hospitalization, Other)
  Sender: FDA-Public Use
  Company Number: US-BRISTOL-MYERS SQUIBB COMPANY-BMS-2018-115231

PATIENT
  Age: 70 Year
  Sex: Female
  Weight: 132.4 kg

DRUGS (4)
  1. METOPROLOL. [Suspect]
     Active Substance: METOPROLOL
     Indication: ATRIAL FIBRILLATION
     Dosage: 100 MG, UNK
     Route: 048
  2. TIKOSYN [Suspect]
     Active Substance: DOFETILIDE
     Indication: ATRIAL FIBRILLATION
     Dosage: 500 ?G, BID
     Route: 048
  3. ELIQUIS [Suspect]
     Active Substance: APIXABAN
     Indication: CEREBROVASCULAR ACCIDENT PROPHYLAXIS
     Dosage: 5 MG, BID
     Route: 048
  4. TIKOSYN [Suspect]
     Active Substance: DOFETILIDE
     Indication: PRODUCT USED FOR UNKNOWN INDICATION
     Dosage: 125 ?G, BID
     Route: 048

REACTIONS (9)
  - Arthritis [Unknown]
  - Cardiac disorder [Recovered/Resolved]
  - Fall [Recovered/Resolved]
  - Loss of consciousness [Unknown]
  - Atrial fibrillation [Recovered/Resolved]
  - Gait disturbance [Unknown]
  - Fibula fracture [Recovered/Resolved]
  - Asthenia [Unknown]
  - Nightmare [Unknown]

NARRATIVE: CASE EVENT DATE: 20181025
